FAERS Safety Report 5923342-7 (Version None)
Quarter: 2008Q4

REPORT INFORMATION
  Report Type: 
  Country: None (occurrence: None)
  Receive Date: 20081015
  Receipt Date: 20081006
  Transmission Date: 20090506
  Serious: Yes (Death)
  Sender: FDA-Public Use
  Company Number: B541343A

PATIENT
  Age: 61 Year
  Sex: Female

DRUGS (4)
  1. ACETAMINOPHEN [Suspect]
  2. PARACETAMOL HYDROCHLORIDE (FORMULATION UNKNOWN) (GENERIC) (PAROXETINE [Suspect]
  3. HYDROCODONE (FORMULATION UNKNOWN) (HYDROCODONE) [Suspect]
  4. DEXTROPROPOXYPHENE (FORMULATION UNKNOWN) (DEXTROPROPOXYPHENE) [Suspect]

REACTIONS (8)
  - BRAIN HERNIATION [None]
  - BRAIN OEDEMA [None]
  - CEREBRAL HAEMORRHAGE [None]
  - DISSEMINATED INTRAVASCULAR COAGULATION [None]
  - DRUG INTERACTION [None]
  - DRUG TOXICITY [None]
  - GLIOBLASTOMA MULTIFORME [None]
  - MULTIPLE DRUG OVERDOSE [None]
